FAERS Safety Report 7126694-8 (Version None)
Quarter: 2010Q4

REPORT INFORMATION
  Report Type: 
  Country: None (occurrence: None)
  Receive Date: 20101129
  Receipt Date: 20101116
  Transmission Date: 20110411
  Serious: Yes (Other)
  Sender: FDA-Public Use
  Company Number: GB-B.I. PHARMACEUTICALS,INC./RIDGEFIELD-2010-UK-00122UK

PATIENT
  Sex: Female

DRUGS (4)
  1. VIRAMUNE [Suspect]
     Indication: PROPHYLAXIS AGAINST HIV INFECTION
     Dosage: 200 MG
     Route: 048
     Dates: start: 20100114
  2. VIRAMUNE [Suspect]
     Indication: HIV INFECTION
     Dosage: 400 MG
     Route: 048
     Dates: end: 20100211
  3. COMBIVIR [Concomitant]
     Indication: HIV INFECTION
     Dosage: ONE BD
     Route: 048
     Dates: start: 20100114
  4. COMBIVIR [Concomitant]
     Indication: PROPHYLAXIS AGAINST HIV INFECTION

REACTIONS (5)
  - ANTEPARTUM HAEMORRHAGE [None]
  - CAESAREAN SECTION [None]
  - FAILED INDUCTION OF LABOUR [None]
  - HEPATIC ENZYME INCREASED [None]
  - PRURITUS [None]
